FAERS Safety Report 4631879-6 (Version None)
Quarter: 2005Q2

REPORT INFORMATION
  Report Type: 
  Country: None (occurrence: None)
  Receive Date: 20050404
  Receipt Date: 20050201
  Transmission Date: 20051028
  Serious: Yes (Hospitalization)
  Sender: FDA-Public Use
  Company Number: CFX20050004

PATIENT
  Age: 73 Year
  Sex: Male
  Weight: 64.4108 kg

DRUGS (3)
  1. CIPROFLOXACIN 750 MG DR. REDDY [Suspect]
     Indication: EAR INFECTION
     Dosage: 750 MG BID PO
     Route: 048
     Dates: start: 20050125, end: 20050126
  2. SIMVASTATIN [Concomitant]
  3. CALCIUM GLUCONATE [Concomitant]

REACTIONS (1)
  - DRUG HYPERSENSITIVITY [None]
